FAERS Safety Report 4456248-3 (Version None)
Quarter: 2004Q3

REPORT INFORMATION
  Report Type: 
  Country: None (occurrence: None)
  Receive Date: 20040902
  Receipt Date: 20040623
  Transmission Date: 20050211
  Serious: No
  Sender: FDA-Public Use
  Company Number: 200325925BWH

PATIENT
  Age: 70 Year
  Sex: Male
  Weight: 58.9676 kg

DRUGS (6)
  1. LEVITRA [Suspect]
     Indication: ERECTILE DYSFUNCTION
     Dosage: 5 MG, ONCE, ORAL
     Route: 048
     Dates: start: 20031009
  2. PROSCAR [Concomitant]
  3. ATIVAN [Concomitant]
  4. VIRAMIN B12 [Concomitant]
  5. VITAMIN B6 [Concomitant]
  6. SOY PROTEIN [Concomitant]

REACTIONS (2)
  - ERECTILE DYSFUNCTION [None]
  - FEELING OF RELAXATION [None]
